FAERS Safety Report 14878224 (Version 2)
Quarter: 2018Q2

REPORT INFORMATION
  Report Type: Report from Study
  Country: US (occurrence: US)
  Receive Date: 20180510
  Receipt Date: 20180628
  Transmission Date: 20180711
  Serious: Yes (Other)
  Sender: FDA-Public Use
  Company Number: US-ROCHE-2074366

PATIENT
  Sex: Male
  Weight: 72.64 kg

DRUGS (2)
  1. ERIVEDGE [Suspect]
     Active Substance: VISMODEGIB
     Indication: BASAL CELL CARCINOMA
     Route: 065
     Dates: start: 201712
  2. BAUSCH + LOMB EYE WASH [Concomitant]

REACTIONS (16)
  - Depression [Unknown]
  - Muscle spasms [Not Recovered/Not Resolved]
  - Weight decreased [Unknown]
  - Eye burns [Unknown]
  - Dysgeusia [Unknown]
  - Hair colour changes [Unknown]
  - Eyelid infection [Unknown]
  - Feeling abnormal [Unknown]
  - Insomnia [Unknown]
  - Pain in extremity [Unknown]
  - Eyelid margin crusting [Unknown]
  - Eye discharge [Unknown]
  - Lacrimation increased [Unknown]
  - Alopecia [Unknown]
  - Decreased appetite [Unknown]
  - Eyelid disorder [Unknown]
